FAERS Safety Report 19739981 (Version 1)
Quarter: 2021Q3

REPORT INFORMATION
  Report Type: Spontaneous
  Country: NP (occurrence: NP)
  Receive Date: 20210824
  Receipt Date: 20210824
  Transmission Date: 20211014
  Serious: Yes (Life-Threatening, Hospitalization, Other)
  Sender: FDA-Public Use
  Company Number: NP-LUPIN PHARMACEUTICALS INC.-2021-15370

PATIENT
  Age: 32 Year
  Sex: Female

DRUGS (2)
  1. MISOPROSTOL. [Suspect]
     Active Substance: MISOPROSTOL
     Indication: ABORTION INDUCED
     Dosage: 400 MICROGRAM
     Route: 048
  2. MIFEPRISTONE [Suspect]
     Active Substance: MIFEPRISTONE
     Indication: ABORTION INDUCED
     Dosage: 200 MILLIGRAM (ON DAY 1 ON FIRST ADMISSION; ON THIRD ADMISSION; CUMULATIVE TOTAL OF 63 DOSES OF MISO
     Route: 048

REACTIONS (3)
  - Drug ineffective [Unknown]
  - Uterine rupture [Recovering/Resolving]
  - Exposure during pregnancy [Unknown]
